FAERS Safety Report 20049355 (Version 4)
Quarter: 2021Q4

REPORT INFORMATION
  Report Type: Report from Study
  Country: US (occurrence: US)
  Receive Date: 20211109
  Receipt Date: 20211207
  Transmission Date: 20220303
  Serious: Yes (Death, Hospitalization, Other)
  Sender: FDA-Public Use
  Company Number: US-TAKEDA-2021TUS066881

PATIENT
  Age: 83 Year
  Sex: Female
  Weight: 31 kg

DRUGS (8)
  1. MOBOCERTINIB [Suspect]
     Active Substance: MOBOCERTINIB
     Indication: Non-small cell lung cancer
     Dosage: 160 MILLIGRAM, QD
     Route: 048
     Dates: start: 20211025, end: 20211101
  2. MOBOCERTINIB [Suspect]
     Active Substance: MOBOCERTINIB
     Indication: Lung neoplasm malignant
     Dosage: 80 MILLIGRAM, QD
     Route: 048
     Dates: start: 20211118
  3. PEPTO-BISMOL [Concomitant]
     Active Substance: BISMUTH SUBSALICYLATE
     Indication: Electrocardiogram QT prolonged
     Dosage: UNK
     Route: 065
  4. SENOKOT-S [Concomitant]
     Active Substance: DOCUSATE SODIUM\SENNOSIDES
     Dosage: UNK
     Route: 065
  5. LOSARTAN [Concomitant]
     Active Substance: LOSARTAN
     Indication: Hypertension
     Dosage: UNK, BID
     Route: 065
  6. ELIQUIS [Concomitant]
     Active Substance: APIXABAN
     Dosage: UNK, BID
     Route: 065
  7. AMLODIPINE [Concomitant]
     Active Substance: AMLODIPINE BESYLATE
     Dosage: UNK, TID
     Route: 065
  8. SOTALOL [Concomitant]
     Active Substance: SOTALOL
     Dosage: UNK UNK, BID
     Route: 065

REACTIONS (29)
  - Death [Fatal]
  - Pain [Unknown]
  - Renal pain [Unknown]
  - Back pain [Not Recovered/Not Resolved]
  - Groin pain [Unknown]
  - Syncope [Not Recovered/Not Resolved]
  - Atrial fibrillation [Not Recovered/Not Resolved]
  - Electrocardiogram QT prolonged [Unknown]
  - Urinary retention [Not Recovered/Not Resolved]
  - Gastrooesophageal reflux disease [Not Recovered/Not Resolved]
  - Gait disturbance [Not Recovered/Not Resolved]
  - Sleep disorder [Not Recovered/Not Resolved]
  - Fatigue [Not Recovered/Not Resolved]
  - Asthenia [Not Recovered/Not Resolved]
  - Dizziness [Not Recovered/Not Resolved]
  - Abdominal pain upper [Unknown]
  - Abdominal discomfort [Unknown]
  - Abdominal distension [Unknown]
  - Cough [Unknown]
  - Memory impairment [Unknown]
  - Weight decreased [Unknown]
  - Chromaturia [Unknown]
  - White blood cells urine [Not Recovered/Not Resolved]
  - Bladder pain [Not Recovered/Not Resolved]
  - Dysuria [Not Recovered/Not Resolved]
  - Urinary incontinence [Not Recovered/Not Resolved]
  - Abdominal pain [Not Recovered/Not Resolved]
  - Decreased appetite [Unknown]
  - Off label use [Not Recovered/Not Resolved]

NARRATIVE: CASE EVENT DATE: 20211026
